FAERS Safety Report 5370805-1 (Version None)
Quarter: 2007Q2

REPORT INFORMATION
  Report Type: 
  Country: None (occurrence: None)
  Receive Date: 20070626
  Receipt Date: 20070619
  Transmission Date: 20071010
  Serious: Yes (Other)
  Sender: FDA-Public Use
  Company Number: B0476757A

PATIENT
  Age: 31 Year
  Sex: Female

DRUGS (2)
  1. LITHIUM [Suspect]
  2. DEPO-PROVERA [Suspect]
     Route: 030
     Dates: start: 20010101

REACTIONS (3)
  - AMENORRHOEA [None]
  - OLIGOMENORRHOEA [None]
  - SUICIDE ATTEMPT [None]
